FAERS Safety Report 21002130 (Version 2)
Quarter: 2022Q4

REPORT INFORMATION
  Report Type: Spontaneous
  Country: JP (occurrence: JP)
  Receive Date: 20220624
  Receipt Date: 20221013
  Transmission Date: 20230112
  Serious: Yes (Life-Threatening, Hospitalization, Other)
  Sender: FDA-Public Use
  Company Number: JP-CHUGAI-2022015992

PATIENT
  Age: 78 Year
  Sex: Female
  Weight: 46.1 kg

DRUGS (10)
  1. ACTEMRA [Suspect]
     Active Substance: TOCILIZUMAB
     Indication: Castleman^s disease
     Dosage: UNK UNK, ONCE/2WEEKS
     Route: 041
     Dates: start: 20191128, end: 20220411
  2. MEDROL [Suspect]
     Active Substance: METHYLPREDNISOLONE
     Indication: Still^s disease
     Dosage: UNK
     Route: 065
     Dates: start: 20140304
  3. MEDROL [Suspect]
     Active Substance: METHYLPREDNISOLONE
     Dosage: 40 MILLIGRAM
     Route: 065
     Dates: start: 20220416
  4. MEDROL [Suspect]
     Active Substance: METHYLPREDNISOLONE
     Dosage: 20 MILLIGRAM
     Route: 065
     Dates: start: 20220417
  5. MEDROL [Suspect]
     Active Substance: METHYLPREDNISOLONE
     Dosage: 10 MILLIGRAM
     Route: 065
     Dates: start: 20220420
  6. PROGRAF [Suspect]
     Active Substance: TACROLIMUS
     Indication: Still^s disease
     Dosage: UNK
     Route: 065
     Dates: start: 20140317
  7. VONOPRAZAN FUMARATE [Concomitant]
     Active Substance: VONOPRAZAN FUMARATE
     Dosage: UNK
     Route: 065
  8. FEBUXOSTAT [Concomitant]
     Active Substance: FEBUXOSTAT
     Dosage: UNK
     Route: 065
  9. ONEALFA [Concomitant]
     Active Substance: ALFACALCIDOL
     Dosage: UNK
     Route: 065
  10. DENOSUMAB [Concomitant]
     Active Substance: DENOSUMAB
     Indication: Osteoporosis
     Route: 065

REACTIONS (11)
  - Small intestinal ulcer perforation [Recovering/Resolving]
  - Peritonitis [Unknown]
  - Diverticulitis [Recovered/Resolved]
  - Renal impairment [Unknown]
  - Pneumonia aspiration [Recovered/Resolved]
  - Mesenteric vein thrombosis [Recovered/Resolved]
  - Aspergillus test positive [Recovered/Resolved]
  - Liver disorder [Unknown]
  - Hypogammaglobulinaemia [Not Recovered/Not Resolved]
  - Venous thrombosis limb [Not Recovered/Not Resolved]
  - Off label use [Unknown]

NARRATIVE: CASE EVENT DATE: 20191128
